FAERS Safety Report 15631148 (Version 1)
Quarter: 2018Q4

REPORT INFORMATION
  Report Type: Report from Study
  Country: None (occurrence: FR)
  Receive Date: 20181119
  Receipt Date: 20181119
  Transmission Date: 20190205
  Serious: Yes (Hospitalization)
  Sender: FDA-Public Use
  Company Number: FR-ABBVIE-18K-056-2555892-00

PATIENT
  Age: 66 Year
  Sex: Male
  Weight: 95 kg

DRUGS (26)
  1. ALLOPURINOL. [Concomitant]
     Active Substance: ALLOPURINOL
     Indication: PRODUCT USED FOR UNKNOWN INDICATION
     Dates: start: 2012, end: 20171121
  2. DAIVOBET (CALCIPOTRIOL/BETAMETHASONE DIPROPIONATE) (NON-ABBVIE) [Concomitant]
     Indication: PRODUCT USED FOR UNKNOWN INDICATION
     Dates: start: 201703, end: 20171228
  3. LERCAN [Concomitant]
     Active Substance: LERCANIDIPINE
     Indication: PRODUCT USED FOR UNKNOWN INDICATION
     Dates: end: 20171121
  4. TEMERIT [Concomitant]
     Active Substance: NEBIVOLOL
     Indication: PRODUCT USED FOR UNKNOWN INDICATION
  5. PERINDOPRIL INDAPAMIDE RICHTER [Concomitant]
     Indication: PRODUCT USED FOR UNKNOWN INDICATION
  6. DEXERYL [Concomitant]
     Indication: PRODUCT USED FOR UNKNOWN INDICATION
     Dates: start: 201703
  7. INEXIUM [Concomitant]
     Active Substance: ESOMEPRAZOLE
     Indication: PRODUCT USED FOR UNKNOWN INDICATION
     Dates: start: 2012
  8. VITABACT [Concomitant]
     Active Substance: PICLOXYDINE DIHYDROCHLORIDE
     Indication: PRODUCT USED FOR UNKNOWN INDICATION
     Dates: end: 201711
  9. KARDEGIC [Concomitant]
     Active Substance: ASPIRIN DL-LYSINE
     Indication: PRODUCT USED FOR UNKNOWN INDICATION
     Dates: start: 201711
  10. HUMIRA [Suspect]
     Active Substance: ADALIMUMAB
     Route: 058
     Dates: start: 201704, end: 201711
  11. PRAXILENE [Concomitant]
     Active Substance: NAFRONYL
     Indication: PRODUCT USED FOR UNKNOWN INDICATION
     Dates: start: 2014, end: 2017
  12. SPIRIVA [Concomitant]
     Active Substance: TIOTROPIUM BROMIDE MONOHYDRATE
     Indication: PRODUCT USED FOR UNKNOWN INDICATION
     Dates: start: 2012
  13. BECLOSPIN [Concomitant]
     Active Substance: BECLOMETHASONE DIPROPIONATE
     Indication: PRODUCT USED FOR UNKNOWN INDICATION
     Dates: end: 20171121
  14. OXEOL [Concomitant]
     Active Substance: BAMBUTEROL HYDROCHLORIDE
     Indication: PRODUCT USED FOR UNKNOWN INDICATION
     Dates: start: 2014, end: 20171228
  15. INNOVAIR [Concomitant]
     Active Substance: BECLOMETHASONE DIPROPIONATE\FORMOTEROL
     Indication: PRODUCT USED FOR UNKNOWN INDICATION
  16. CORVASAL [Concomitant]
     Indication: PRODUCT USED FOR UNKNOWN INDICATION
     Dates: start: 2012, end: 20171121
  17. DIFFU K [Concomitant]
     Active Substance: POTASSIUM CHLORIDE
     Indication: PRODUCT USED FOR UNKNOWN INDICATION
     Dates: start: 2014
  18. KALEORID [Concomitant]
     Active Substance: POTASSIUM CHLORIDE
     Indication: PRODUCT USED FOR UNKNOWN INDICATION
     Dates: end: 20171121
  19. HUMIRA [Suspect]
     Active Substance: ADALIMUMAB
     Indication: PSORIASIS
     Route: 058
     Dates: start: 201703, end: 201704
  20. ISOPTINE [Concomitant]
     Active Substance: VERAPAMIL HYDROCHLORIDE
     Indication: PRODUCT USED FOR UNKNOWN INDICATION
     Dates: start: 20121221
  21. PLAVIX [Concomitant]
     Active Substance: CLOPIDOGREL BISULFATE
     Indication: PRODUCT USED FOR UNKNOWN INDICATION
     Dates: start: 2012, end: 20171104
  22. BRILIQUE [Concomitant]
     Active Substance: TICAGRELOR
     Indication: PRODUCT USED FOR UNKNOWN INDICATION
     Dates: start: 20171121
  23. LASIX [Concomitant]
     Active Substance: FUROSEMIDE
     Indication: PRODUCT USED FOR UNKNOWN INDICATION
     Dates: start: 20121221
  24. CRESTOR [Concomitant]
     Active Substance: ROSUVASTATIN CALCIUM
     Indication: PRODUCT USED FOR UNKNOWN INDICATION
     Dates: start: 2012
  25. PANTOPRAZOLE [Concomitant]
     Active Substance: PANTOPRAZOLE
     Indication: PRODUCT USED FOR UNKNOWN INDICATION
     Dates: start: 201611
  26. TRIATEC (CODEINE PHOSPHATE/PARACETAMOL) [Concomitant]
     Active Substance: ACETAMINOPHEN\CODEINE PHOSPHATE
     Indication: PRODUCT USED FOR UNKNOWN INDICATION

REACTIONS (5)
  - Oedema peripheral [Recovered/Resolved]
  - Coronary artery thrombosis [Recovered/Resolved]
  - Cardiac failure [Recovered/Resolved]
  - Coronary arterial stent insertion [Recovered/Resolved]
  - Acute coronary syndrome [Recovered/Resolved]

NARRATIVE: CASE EVENT DATE: 201710
